FAERS Safety Report 9839290 (Version 2)
Quarter: 2014Q1

REPORT INFORMATION
  Report Type: Report from Study
  Country: US (occurrence: US)
  Receive Date: 20140123
  Receipt Date: 20140212
  Transmission Date: 20141002
  Serious: Yes (Hospitalization)
  Sender: FDA-Public Use
  Company Number: PHEH2014US001431

PATIENT
  Sex: Male

DRUGS (2)
  1. SANDIMMUNE NEORAL [Suspect]
     Indication: RENAL TRANSPLANT
     Dosage: 125 MG, BID
     Route: 048
  2. SANDIMMUNE [Concomitant]
     Dosage: UNK UKN, UNK

REACTIONS (4)
  - Blood carbon monoxide increased [Unknown]
  - Daydreaming [Unknown]
  - Dizziness [Unknown]
  - Malaise [Unknown]
